FAERS Safety Report 17205705 (Version 4)
Quarter: 2020Q2

REPORT INFORMATION
  Report Type: Report from Study
  Country: US (occurrence: US)
  Receive Date: 20191227
  Receipt Date: 20200421
  Transmission Date: 20200713
  Serious: Yes (Other)
  Sender: FDA-Public Use
  Company Number: US-EMD SERONO-9136559

PATIENT
  Sex: Female

DRUGS (2)
  1. TYLENOL PM [Concomitant]
     Active Substance: ACETAMINOPHEN\DIPHENHYDRAMINE
     Indication: PRODUCT USED FOR UNKNOWN INDICATION
  2. REBIF [Suspect]
     Active Substance: INTERFERON BETA-1A
     Indication: PRODUCT USED FOR UNKNOWN INDICATION
     Route: 058
     Dates: start: 20030929

REACTIONS (6)
  - Injection site atrophy [Unknown]
  - Tympanoplasty [Recovering/Resolving]
  - Walking aid user [Not Recovered/Not Resolved]
  - Arthralgia [Recovering/Resolving]
  - Back pain [Recovered/Resolved]
  - Injection site pain [Unknown]
